FAERS Safety Report 6087375-5 (Version None)
Quarter: 2009Q1

REPORT INFORMATION
  Report Type: 
  Country: None (occurrence: None)
  Receive Date: 20090223
  Receipt Date: 20090218
  Transmission Date: 20090719
  Serious: Yes (Hospitalization)
  Sender: FDA-Public Use
  Company Number: B0560242A

PATIENT
  Age: 53 Year
  Sex: Male

DRUGS (12)
  1. AUGMENTIN '125' [Suspect]
     Indication: INFECTION
     Route: 048
     Dates: start: 20070717, end: 20070721
  2. OFLOCET [Concomitant]
     Route: 065
     Dates: start: 20070701, end: 20070701
  3. ROCEPHIN [Concomitant]
     Route: 065
     Dates: start: 20070721
  4. VANCOMYCINE [Concomitant]
     Route: 065
     Dates: start: 20070721
  5. BACTRIM [Concomitant]
     Dates: start: 20070701
  6. ALLOPURINOL [Concomitant]
     Dates: start: 20070701
  7. ORACILLIN [Concomitant]
     Dates: start: 20070701
  8. NEXIUM [Concomitant]
     Dates: start: 20070701
  9. RITUXIMAB [Concomitant]
     Dates: start: 20070701, end: 20070701
  10. DEXAMETHASONE [Concomitant]
     Dates: start: 20070701, end: 20070701
  11. CISPLATIN [Concomitant]
     Dates: start: 20070701, end: 20070701
  12. CYTARABINE [Concomitant]
     Dates: start: 20070701, end: 20070701

REACTIONS (5)
  - BLOOD CREATININE INCREASED [None]
  - EOSINOPHILIA [None]
  - OEDEMA [None]
  - RASH GENERALISED [None]
  - TOXIC SKIN ERUPTION [None]
